FAERS Safety Report 19745970 (Version 2)
Quarter: 2022Q1

REPORT INFORMATION
  Report Type: Spontaneous
  Country: PL (occurrence: None)
  Receive Date: 20210825
  Receipt Date: 20220105
  Transmission Date: 20220423
  Serious: Yes (Death, Other)
  Sender: FDA-Public Use
  Company Number: PL-AMGEN-POLSP2021123728

PATIENT
  Age: 63 Year
  Sex: Female

DRUGS (9)
  1. IRINOTECAN [Suspect]
     Active Substance: IRINOTECAN
     Indication: Adenocarcinoma of colon
     Dosage: 180 MILLIGRAM/SQ. METER, Q2WK (1.5-HOUR INFUSION)
     Route: 042
     Dates: start: 20210520
  2. PANITUMUMAB [Suspect]
     Active Substance: PANITUMUMAB
     Indication: Adenocarcinoma of colon
     Dosage: 6 MILLIGRAM/KILOGRAM, Q2WK (1-HOUR INFUSION)
     Route: 042
     Dates: start: 20210520
  3. FLUOROURACIL [Suspect]
     Active Substance: FLUOROURACIL
     Indication: Adenocarcinoma of colon
     Dosage: 400 MILLIGRAM/SQ. METER, Q2WK (DAY 1-2)
     Route: 040
     Dates: start: 20210520
  4. FLUOROURACIL [Suspect]
     Active Substance: FLUOROURACIL
     Dosage: 600 MILLIGRAM/SQ. METER, Q2WK (22-HOUR INFUSION, DAY 1-2)
     Route: 041
     Dates: start: 20210520
  5. LEVOLEUCOVORIN DISODIUM [Suspect]
     Active Substance: LEVOLEUCOVORIN DISODIUM
     Indication: Adenocarcinoma of colon
     Dosage: 100 MILLIGRAM/SQ. METER, Q2WK (2-HOUR INFUSION DAY 1-2)
     Route: 042
     Dates: start: 20210520
  6. MONTELUKAST SODIUM [Concomitant]
     Active Substance: MONTELUKAST SODIUM
     Indication: Product used for unknown indication
     Dosage: 10 MILLIGRAM (IN THE EVENING)
     Route: 065
  7. LORATADINE [Concomitant]
     Active Substance: LORATADINE
     Indication: Product used for unknown indication
     Dosage: 10 MILLIGRAM (IN THE MORNING)
     Route: 065
  8. PEGFILGRASTIM [Concomitant]
     Active Substance: PEGFILGRASTIM
     Indication: Prophylaxis
     Dosage: UNK
     Route: 065
     Dates: start: 2021
  9. LISINOPRIL [Concomitant]
     Active Substance: LISINOPRIL
     Indication: Hypertension
     Dosage: 20 MILLIGRAM, AS NECESSARY
     Route: 065

REACTIONS (5)
  - Stomatitis [Unknown]
  - Sudden death [Fatal]
  - Dermatitis acneiform [Unknown]
  - Nausea [Unknown]
  - Hypomagnesaemia [Unknown]

NARRATIVE: CASE EVENT DATE: 20210101
